FAERS Safety Report 6177996-3 (Version None)
Quarter: 2009Q2

REPORT INFORMATION
  Report Type: 
  Country: None (occurrence: None)
  Receive Date: 20090501
  Receipt Date: 20090501
  Transmission Date: 20091009
  Serious: Yes (Hospitalization)
  Sender: FDA-Public Use
  Company Number: None

PATIENT
  Age: 71 Year
  Sex: Female
  Weight: 66.9509 kg

DRUGS (2)
  1. TAXOTERE [Suspect]
     Indication: LUNG CARCINOMA CELL TYPE UNSPECIFIED STAGE IV
     Dosage: 50 MG, EVERY 3 WEEKS, IV
     Route: 042
     Dates: start: 20090312, end: 20090422
  2. NEXAVAR [Suspect]
     Dosage: 200 MG TAB TWICE DAILY
     Dates: start: 20090409, end: 20090422

REACTIONS (1)
  - CEREBROVASCULAR ACCIDENT [None]
